FAERS Safety Report 4734848-0 (Version None)
Quarter: 2005Q3

REPORT INFORMATION
  Report Type: 
  Country: None (occurrence: None)
  Receive Date: 20050804
  Receipt Date: 20050726
  Transmission Date: 20060218
  Serious: Yes (Hospitalization)
  Sender: FDA-Public Use
  Company Number: US-BRISTOL-MYERS SQUIBB COMPANY-13050463

PATIENT
  Sex: Female

DRUGS (2)
  1. COUMADIN [Suspect]
  2. AVELOX [Suspect]
     Indication: PNEUMONIA
     Dosage: AVELOX: INTRAVENOUS, DURATION=2 DAYS AVELOX: ORAL (UNSPECIFIED DOSING AND DATES)
     Route: 048

REACTIONS (2)
  - INTERNATIONAL NORMALISED RATIO INCREASED [None]
  - PNEUMONIA [None]
